FAERS Safety Report 9548893 (Version 1)
Quarter: 2013Q3

REPORT INFORMATION
  Report Type: Spontaneous
  Country: FR (occurrence: FR)
  Receive Date: 20130924
  Receipt Date: 20130924
  Transmission Date: 20140515
  Serious: Yes (Death, Hospitalization)
  Sender: FDA-Public Use
  Company Number: FR-PFIZER INC-2013271876

PATIENT
  Age: 85 Year
  Sex: Female

DRUGS (11)
  1. AMLOR [Suspect]
     Indication: HYPERTENSION
     Dosage: 10 MG, DAILY
     Route: 048
  2. APROVEL [Suspect]
     Indication: HYPERTENSION
     Dosage: 300 MG, DAILY
     Route: 048
  3. TAHOR [Concomitant]
     Dosage: UNK
  4. ARICEPT [Concomitant]
  5. ASPEGIC [Concomitant]
     Dosage: UNK
  6. INEXIUM [Concomitant]
     Dosage: UNK
  7. NOVONORM [Concomitant]
  8. SEROPLEX [Concomitant]
     Dosage: UNK
  9. TARDYFERON [Concomitant]
  10. DAKTARIN [Concomitant]
  11. LAMISIL [Concomitant]

REACTIONS (5)
  - Renal failure acute [Fatal]
  - Hypotension [Fatal]
  - Malaise [Fatal]
  - Sepsis [Fatal]
  - Decreased appetite [Unknown]
